FAERS Safety Report 14358471 (Version 1)
Quarter: 2018Q1

REPORT INFORMATION
  Report Type: Spontaneous
  Country: US (occurrence: US)
  Receive Date: 20180105
  Receipt Date: 20180105
  Transmission Date: 20180509
  Serious: No
  Sender: FDA-Public Use
  Company Number: US-SA-2017SA228706

PATIENT
  Age: 71 Year
  Sex: Male

DRUGS (12)
  1. FENTANYL. [Concomitant]
     Active Substance: FENTANYL
  2. DUPIXENT [Suspect]
     Active Substance: DUPILUMAB
     Indication: ECZEMA
     Dosage: DOSE 1 SYRINGE
     Route: 058
     Dates: start: 20171028, end: 20171028
  3. HYDROCODONE BITARTRATE AND ACETAMINOPHEN [Concomitant]
     Active Substance: ACETAMINOPHEN\HYDROCODONE BITARTRATE
  4. MORPHINE SULFATE. [Concomitant]
     Active Substance: MORPHINE SULFATE
  5. TRIAMCINOLONE [Concomitant]
     Active Substance: TRIAMCINOLONE
  6. LEVOCETRIZINE [Concomitant]
     Active Substance: LEVOCETIRIZINE
  7. LOSARTAN. [Concomitant]
     Active Substance: LOSARTAN
  8. CEPHALEXIN. [Concomitant]
     Active Substance: CEPHALEXIN
  9. METOPROLOL. [Concomitant]
     Active Substance: METOPROLOL
  10. LEVOTHYROXINE. [Concomitant]
     Active Substance: LEVOTHYROXINE
  11. DUPIXENT [Suspect]
     Active Substance: DUPILUMAB
     Indication: ECZEMA
     Dosage: DOSE 1 SYRINGE
     Route: 058
     Dates: start: 20171029, end: 20171029
  12. MUPIROCIN. [Concomitant]
     Active Substance: MUPIROCIN

REACTIONS (1)
  - Product use issue [Unknown]
